FAERS Safety Report 9428261 (Version 3)
Quarter: 2014Q1

REPORT INFORMATION
  Report Type: Spontaneous
  Country: US (occurrence: US)
  Receive Date: 20130730
  Receipt Date: 20140326
  Transmission Date: 20141002
  Serious: No
  Sender: FDA-Public Use
  Company Number: US-PFIZER INC-2013218771

PATIENT
  Age: 83 Year
  Sex: Female

DRUGS (1)
  1. XALKORI [Suspect]
     Indication: LUNG NEOPLASM MALIGNANT
     Dosage: 200 MG, 2X/DAY
     Dates: start: 20130613

REACTIONS (5)
  - Constipation [Unknown]
  - Dysgeusia [Unknown]
  - Local swelling [Unknown]
  - Pain in extremity [Unknown]
  - Inflammation [Unknown]
